FAERS Safety Report 12192379 (Version 2)
Quarter: 2019Q1

REPORT INFORMATION
  Report Type: Spontaneous
  Country: CH (occurrence: CH)
  Receive Date: 20160318
  Receipt Date: 20190102
  Transmission Date: 20190417
  Serious: Yes (Hospitalization, Other)
  Sender: FDA-Public Use
  Company Number: CH-MYLANLABS-2016M1011668

PATIENT
  Age: 22 Year
  Sex: Female

DRUGS (11)
  1. TORASEMIDE [Suspect]
     Active Substance: TORSEMIDE
     Indication: MUSCLE BUILDING THERAPY
     Route: 048
  2. STANOZOLOL [Suspect]
     Active Substance: STANOZOLOL
     Indication: MUSCLE BUILDING THERAPY
     Route: 048
  3. ALDACTONE [Suspect]
     Active Substance: SPIRONOLACTONE
     Indication: MUSCLE BUILDING THERAPY
     Route: 048
  4. LEVOTHYROXINE. [Suspect]
     Active Substance: LEVOTHYROXINE
     Indication: MUSCLE BUILDING THERAPY
     Route: 048
  5. LIOTHYRONINE [Suspect]
     Active Substance: LIOTHYRONINE
     Indication: MUSCLE BUILDING THERAPY
     Route: 048
  6. ANASTROZOLE. [Suspect]
     Active Substance: ANASTROZOLE
     Indication: MUSCLE BUILDING THERAPY
     Route: 048
  7. TORASEMIDE [Suspect]
     Active Substance: TORSEMIDE
     Indication: DIURETIC THERAPY
  8. MECASERMIN [Suspect]
     Active Substance: MECASERMIN
     Indication: MUSCLE BUILDING THERAPY
     Route: 048
  9. METHYLTESTOSTERONE. [Suspect]
     Active Substance: METHYLTESTOSTERONE
     Indication: MUSCLE BUILDING THERAPY
     Route: 048
  10. CLENBUTEROL [Suspect]
     Active Substance: CLENBUTEROL
     Indication: MUSCLE BUILDING THERAPY
     Route: 048
  11. ALDACTONE [Suspect]
     Active Substance: SPIRONOLACTONE
     Indication: DIURETIC THERAPY

REACTIONS (5)
  - Rhinovirus infection [Recovering/Resolving]
  - Hyperthyroidism [Unknown]
  - Acute respiratory distress syndrome [Recovering/Resolving]
  - Intentional product misuse [Unknown]
  - Pneumonia [Recovering/Resolving]
